FAERS Safety Report 10218991 (Version 1)
Quarter: 2014Q2

REPORT INFORMATION
  Report Type: Report from Study
  Country: JP (occurrence: JP)
  Receive Date: 20140605
  Receipt Date: 20140605
  Transmission Date: 20141212
  Serious: Yes (Death, Disabling)
  Sender: FDA-Public Use
  Company Number: JP-SA-2014SA072562

PATIENT
  Age: 55 Year
  Sex: Male
  Weight: 55 kg

DRUGS (12)
  1. THYMOGLOBULINE [Suspect]
     Indication: APLASTIC ANAEMIA
     Route: 042
     Dates: start: 20101220, end: 20101224
  2. NEORAL [Suspect]
     Indication: APLASTIC ANAEMIA
     Route: 065
     Dates: start: 20101220, end: 20110121
  3. PREDONINE [Suspect]
     Indication: APLASTIC ANAEMIA
     Route: 065
     Dates: start: 20101225, end: 20110114
  4. BAKTAR [Concomitant]
     Indication: INFECTION PROPHYLAXIS
     Dates: start: 20101220, end: 20110413
  5. FLUCONAZOLE [Concomitant]
     Indication: INFECTION PROPHYLAXIS
     Dates: start: 20101220, end: 20110119
  6. OMEPRAL [Concomitant]
     Indication: PROPHYLAXIS AGAINST GASTROINTESTINAL ULCER
     Dates: start: 20101220, end: 20110202
  7. OMEPRAL [Concomitant]
     Indication: PROPHYLAXIS AGAINST GASTROINTESTINAL ULCER
     Dates: start: 20110203, end: 20110301
  8. ZOVIRAX [Concomitant]
     Indication: INFECTION PROPHYLAXIS
     Dates: start: 20101220, end: 20110126
  9. GRAN [Concomitant]
     Indication: APLASTIC ANAEMIA
     Dates: start: 20101220, end: 20110412
  10. MUSCULAX [Concomitant]
     Indication: SEDATION
     Dates: start: 20110203, end: 20110418
  11. LEPETAN [Concomitant]
     Indication: SEDATION
     Dates: start: 20110203, end: 20110417
  12. DORMICUM [Concomitant]
     Indication: SEDATION
     Dates: start: 20110203, end: 20110418

REACTIONS (5)
  - Respiratory failure [Fatal]
  - Pulmonary haemorrhage [Fatal]
  - Bronchopulmonary aspergillosis [Fatal]
  - Pneumonia cytomegaloviral [Fatal]
  - Febrile neutropenia [Not Recovered/Not Resolved]
